FAERS Safety Report 8849981 (Version 1)
Quarter: 2012Q4

REPORT INFORMATION
  Report Type: Report from Study
  Country: DE (occurrence: DE)
  Receive Date: 20121019
  Receipt Date: 20121019
  Transmission Date: 20130627
  Serious: Yes (Hospitalization)
  Sender: FDA-Public Use
  Company Number: DE-ROCHE-1138329

PATIENT
  Age: 35 Year
  Sex: Female
  Weight: 74 kg

DRUGS (4)
  1. TRASTUZUMAB [Suspect]
     Indication: BREAST CANCER
     Dosage: Date of last dose prior to SAE: 05/SEP/2012
     Route: 042
     Dates: start: 20120815
  2. PACLITAXEL [Suspect]
     Indication: BREAST CANCER
     Dosage: Date of last dose prior to SAE: 19/SEP/2012
     Route: 042
     Dates: start: 20120815, end: 20121015
  3. MYOCET [Suspect]
     Indication: BREAST CANCER
     Dosage: Date of last dose prior to SAE: 19/SEP/2012
     Route: 042
     Dates: start: 20120815, end: 20121015
  4. LAPATINIB [Suspect]
     Indication: BREAST CANCER
     Dosage: Date of last dose prior to SAE: 12/SEP/2012
     Route: 048
     Dates: end: 20121015

REACTIONS (2)
  - Pyrexia [Recovered/Resolved]
  - Encephalitis [Recovered/Resolved]
